FAERS Safety Report 11451896 (Version 1)
Quarter: 2015Q3

REPORT INFORMATION
  Report Type: Spontaneous
  Country: GB (occurrence: GB)
  Receive Date: 20150903
  Receipt Date: 20150903
  Transmission Date: 20151125
  Serious: Yes (Hospitalization)
  Sender: FDA-Public Use
  Company Number: GB-MALLINCKRODT-T201504091

PATIENT
  Age: 57 Year
  Sex: Female

DRUGS (2)
  1. SODIUM IODIDE (I 131) CAPSULES T [Suspect]
     Active Substance: SODIUM IODIDE I-131
     Indication: HYPERTHYROIDISM
     Dosage: 600 MBQ, SINGLE
     Route: 065
  2. CARBIMAZOLE [Concomitant]
     Active Substance: CARBIMAZOLE
     Dosage: UNK

REACTIONS (2)
  - Hepatitis acute [Recovering/Resolving]
  - Thyrotoxic crisis [Recovering/Resolving]
